FAERS Safety Report 6788857-0 (Version None)
Quarter: 2010Q2

REPORT INFORMATION
  Report Type: 
  Country: None (occurrence: None)
  Receive Date: 20100623
  Receipt Date: 20080627
  Transmission Date: 20101027
  Serious: Yes (Other)
  Sender: FDA-Public Use
  Company Number: US-PFIZER INC-2008039975

PATIENT
  Sex: Male
  Weight: 52.2 kg

DRUGS (4)
  1. GEODON [Suspect]
     Indication: PSYCHOTIC DISORDER
     Route: 048
     Dates: start: 20060801
  2. GEODON [Suspect]
     Indication: SCHIZOAFFECTIVE DISORDER
  3. ZOLOFT [Concomitant]
  4. REMERON [Concomitant]

REACTIONS (2)
  - CONGENITAL CYSTIC KIDNEY DISEASE [None]
  - CONVULSION [None]
